FAERS Safety Report 6791531-8 (Version None)
Quarter: 2010Q2

REPORT INFORMATION
  Report Type: 
  Country: None (occurrence: None)
  Receive Date: 20100624
  Receipt Date: 20090429
  Transmission Date: 20101027
  Serious: Yes (Other)
  Sender: FDA-Public Use
  Company Number: US-PFIZER INC-2008058133

PATIENT
  Sex: Female
  Weight: 63.492 kg

DRUGS (6)
  1. PROVERA [Suspect]
     Indication: HORMONE REPLACEMENT THERAPY
     Dosage: 2.5 MG, UNK
     Route: 048
     Dates: start: 20010401, end: 20020101
  2. PROVERA [Suspect]
     Indication: MENOPAUSE
  3. PREMPRO [Suspect]
     Indication: HORMONE REPLACEMENT THERAPY
     Dosage: 0.625/2.5 MG
     Dates: start: 19920101, end: 20010101
  4. PREMPRO [Suspect]
     Indication: MENOPAUSE
  5. ESTRATEST [Suspect]
     Indication: MENOPAUSE
     Dosage: UNK
     Dates: start: 20010401, end: 20010601
  6. ESTRACE [Suspect]
     Indication: MENOPAUSE
     Dosage: UNK
     Dates: start: 20010601, end: 20020101

REACTIONS (1)
  - BREAST CANCER [None]
